FAERS Safety Report 10687853 (Version 4)
Quarter: 2016Q1

REPORT INFORMATION
  Report Type: Report from Study
  Country: JP (occurrence: JP)
  Receive Date: 20150102
  Receipt Date: 20160301
  Transmission Date: 20160525
  Serious: Yes (Other)
  Sender: FDA-Public Use
  Company Number: JP-JNJFOC-20141216183

PATIENT
  Age: 62 Year
  Sex: Female
  Weight: 63 kg

DRUGS (15)
  1. SOVRIAD [Suspect]
     Active Substance: SIMEPREVIR
     Indication: CHRONIC HEPATITIS C
     Route: 048
     Dates: start: 20140703, end: 20140924
  2. SODIUM GUALENATE HYDRATE [Concomitant]
     Active Substance: SODIUM GUALENATE MONOHYDRATE
     Indication: PROPHYLAXIS
     Route: 048
     Dates: start: 20140828, end: 20150827
  3. EPADEL S [Concomitant]
     Active Substance: ICOSAPENT ETHYL
     Indication: PROPHYLAXIS
     Route: 048
     Dates: start: 20140703, end: 20140813
  4. SODIUM BICARBONATE. [Concomitant]
     Active Substance: SODIUM BICARBONATE
     Indication: PROPHYLAXIS
     Route: 054
     Dates: start: 20140703, end: 20140714
  5. PROMAC (POLAPREZINC) [Concomitant]
     Active Substance: POLAPREZINC
     Indication: PROPHYLAXIS
     Route: 048
     Dates: start: 20140703, end: 20140813
  6. GASMOTIN [Concomitant]
     Active Substance: MOSAPRIDE CITRATE
     Indication: PROPHYLAXIS
     Route: 048
     Dates: start: 20140814, end: 20140925
  7. NAUZELIN [Concomitant]
     Active Substance: DOMPERIDONE
     Indication: PROPHYLAXIS
     Route: 048
     Dates: start: 20140828, end: 20140924
  8. CLARITIN REDITABS [Concomitant]
     Active Substance: LORATADINE
     Indication: PROPHYLAXIS
     Route: 048
     Dates: start: 20140704, end: 20140813
  9. LOXONIN [Concomitant]
     Active Substance: LOXOPROFEN SODIUM
     Indication: PROPHYLAXIS
     Route: 048
     Dates: start: 20141023, end: 20150820
  10. LOCHOL [Concomitant]
     Active Substance: FLUVASTATIN SODIUM
     Indication: PROPHYLAXIS
     Route: 048
     Dates: start: 20140703, end: 20140813
  11. RIBAVIRIN. [Suspect]
     Active Substance: RIBAVIRIN
     Indication: CHRONIC HEPATITIS C
     Route: 048
     Dates: start: 20140703, end: 20141023
  12. PEGINTRON [Suspect]
     Active Substance: PEGINTERFERON ALFA-2B
     Indication: CHRONIC HEPATITIS C
     Route: 058
     Dates: start: 20140703, end: 20141211
  13. RIBAVIRIN. [Suspect]
     Active Substance: RIBAVIRIN
     Indication: CHRONIC HEPATITIS C
     Route: 048
     Dates: start: 20141024, end: 20141218
  14. LUNESTA [Concomitant]
     Active Substance: ESZOPICLONE
     Indication: PROPHYLAXIS
     Route: 048
     Dates: start: 20140703, end: 20140714
  15. LOXONIN [Concomitant]
     Active Substance: LOXOPROFEN SODIUM
     Indication: PROPHYLAXIS
     Route: 048
     Dates: start: 20140828, end: 20141022

REACTIONS (3)
  - White blood cell count decreased [Recovered/Resolved]
  - Haemoglobin decreased [Recovered/Resolved]
  - Platelet count decreased [Recovered/Resolved]

NARRATIVE: CASE EVENT DATE: 20140707
